FAERS Safety Report 9076637 (Version 1)
Quarter: 2013Q1

REPORT INFORMATION
  Report Type: Report from Study
  Country: US (occurrence: US)
  Receive Date: 20130129
  Receipt Date: 20130129
  Transmission Date: 20140127
  Serious: Yes (Other)
  Sender: FDA-Public Use
  Company Number: US-ABBOTT-12P-163-0942731-00

PATIENT
  Age: 35 None
  Sex: Female
  Weight: 140.74 kg

DRUGS (2)
  1. HUMIRA 40 MG/0.8 ML PEN [Suspect]
     Indication: RHEUMATOID ARTHRITIS
     Dates: start: 20120601
  2. CORTEF [Concomitant]
     Indication: RHEUMATOID ARTHRITIS

REACTIONS (1)
  - Oedema peripheral [Not Recovered/Not Resolved]
